FAERS Safety Report 4374251-9 (Version None)
Quarter: 2004Q2

REPORT INFORMATION
  Report Type: 
  Country: None (occurrence: None)
  Receive Date: 20040608
  Receipt Date: 20040608
  Transmission Date: 20050107
  Serious: Yes (Hospitalization)
  Sender: FDA-Public Use
  Company Number: None

PATIENT
  Age: 75 Year
  Sex: Male
  Weight: 84 kg

DRUGS (7)
  1. INTEGRILIN [Suspect]
     Indication: ANTIPLATELET THERAPY
     Dosage: 2 (23 ML BOLUSES) 6.5 CC/HR IV
     Route: 042
     Dates: start: 20040601, end: 20040604
  2. HEPARIN [Suspect]
     Dosage: 4200 UNIT IV
     Route: 042
     Dates: start: 20040601
  3. MIDAZOLAM HCL [Concomitant]
  4. FENTANYL [Concomitant]
  5. NITROGLYCERIN [Concomitant]
  6. ASPIRIN [Concomitant]
  7. PLAVIX [Concomitant]

REACTIONS (2)
  - ECCHYMOSIS [None]
  - POST PROCEDURAL HAEMORRHAGE [None]
